FAERS Safety Report 6222611-3 (Version None)
Quarter: 2009Q2

REPORT INFORMATION
  Report Type: 
  Country: None (occurrence: None)
  Receive Date: 20090609
  Receipt Date: 20090529
  Transmission Date: 20091009
  Serious: Yes (Hospitalization)
  Sender: FDA-Public Use
  Company Number: GXKR2009US06382

PATIENT
  Age: 15 Year
  Sex: Female
  Weight: 60.2 kg

DRUGS (1)
  1. FUROSEMIDE [Suspect]
     Dosage: 1-2 DF, EVERY 3-4 DAYS

REACTIONS (13)
  - COUGH [None]
  - DIZZINESS [None]
  - DRUG ABUSE [None]
  - HEADACHE [None]
  - HYPOCHLORAEMIA [None]
  - HYPOKALAEMIA [None]
  - HYPOTENSION [None]
  - METABOLIC ACIDOSIS [None]
  - MUSCULAR WEAKNESS [None]
  - NOCTURIA [None]
  - URINE CALCIUM/CREATININE RATIO INCREASED [None]
  - URINE CHLORIDE INCREASED [None]
  - WEIGHT DECREASED [None]
